FAERS Safety Report 7180711-8 (Version None)
Quarter: 2010Q4

REPORT INFORMATION
  Report Type: 
  Country: None (occurrence: None)
  Receive Date: 20101221
  Receipt Date: 20101102
  Transmission Date: 20110411
  Serious: Yes (Other)
  Sender: FDA-Public Use
  Company Number: IT-B.I. PHARMACEUTICALS,INC./RIDGEFIELD-2010-IT-00276IT

PATIENT
  Sex: Male

DRUGS (2)
  1. TAMSULOSIN [Suspect]
  2. ALL OTHER THERAPEUTIC PRODUCTS [Concomitant]

REACTIONS (3)
  - ANAPHYLACTOID REACTION [None]
  - DYSPHONIA [None]
  - PALATAL OEDEMA [None]
